FAERS Safety Report 5427568-0 (Version None)
Quarter: 2007Q3

REPORT INFORMATION
  Report Type: 
  Country: None (occurrence: None)
  Receive Date: 20070828
  Receipt Date: 20070827
  Transmission Date: 20080115
  Serious: Yes (Other)
  Sender: FDA-Public Use
  Company Number: B0479209A

PATIENT
  Age: 59 Year
  Sex: Female

DRUGS (1)
  1. AMOXICILLIN [Suspect]
     Indication: TOOTH INFECTION
     Dosage: 500MG SEE DOSAGE TEXT
     Route: 048
     Dates: start: 20040101

REACTIONS (7)
  - BALANCE DISORDER [None]
  - CHEST PAIN [None]
  - FALL [None]
  - HYPERTENSION [None]
  - LEUKOCYTOSIS [None]
  - PAIN [None]
  - VERTIGO [None]
